FAERS Safety Report 15616159 (Version 1)
Quarter: 2018Q4

REPORT INFORMATION
  Report Type: Spontaneous
  Country: US (occurrence: US)
  Receive Date: 20181108
  Receipt Date: 20181108
  Transmission Date: 20190205
  Serious: Yes (Death)
  Sender: FDA-Public Use
  Company Number: None

PATIENT
  Age: 43 Year
  Sex: Female

DRUGS (4)
  1. IBRANCE [Suspect]
     Active Substance: PALBOCICLIB
     Indication: BREAST CANCER FEMALE
     Dosage: 125 MG QD X21, OFF 7 ORAL?
     Route: 048
     Dates: start: 20180922
  2. BIOTIN [Concomitant]
     Active Substance: BIOTIN
  3. B6 NATURAL [Concomitant]
  4. VITAMIN B [Concomitant]
     Active Substance: VITAMIN B

REACTIONS (1)
  - Death [None]

NARRATIVE: CASE EVENT DATE: 20180930
